FAERS Safety Report 7117571-7 (Version None)
Quarter: 2010Q4

REPORT INFORMATION
  Report Type: 
  Country: None (occurrence: None)
  Receive Date: 20101122
  Receipt Date: 20101117
  Transmission Date: 20110411
  Serious: Yes (Death)
  Sender: FDA-Public Use
  Company Number: US-PFIZER INC-2010116040

PATIENT
  Sex: Female

DRUGS (1)
  1. CAMPTOSAR [Suspect]
     Dosage: 35 MG, EVERY 2 WEEKS

REACTIONS (2)
  - DISEASE PROGRESSION [None]
  - GASTROINTESTINAL TRACT ADENOMA [None]
